FAERS Safety Report 5273273-3 (Version None)
Quarter: 2007Q1

REPORT INFORMATION
  Report Type: 
  Country: None (occurrence: None)
  Receive Date: 20070319
  Receipt Date: 20070301
  Transmission Date: 20070707
  Serious: Yes (Other)
  Sender: FDA-Public Use
  Company Number: 238185

PATIENT
  Age: 67 Year
  Sex: Female

DRUGS (3)
  1. HERCEPTIN [Suspect]
     Indication: BREAST CANCER
     Dosage: 100 MG, Q2W, INTRAVENOUS
     Route: 042
     Dates: start: 20061115
  2. PACLITAXEL [Concomitant]
  3. FARESTON [Concomitant]

REACTIONS (2)
  - GASTRITIS EROSIVE [None]
  - INTERSTITIAL LUNG DISEASE [None]
